FAERS Safety Report 8390997-X (Version None)
Quarter: 2012Q2

REPORT INFORMATION
  Report Type: 
  Country: None (occurrence: None)
  Receive Date: 20120529
  Receipt Date: 20120516
  Transmission Date: 20120825
  Serious: Yes (Hospitalization)
  Sender: FDA-Public Use
  Company Number: JP-JNJFOC-20120311100

PATIENT
  Age: 50 Year
  Sex: Male

DRUGS (4)
  1. RISPERIDONE [Suspect]
     Indication: BIPOLAR I DISORDER
     Route: 048
  2. HALOPERIDOL [Suspect]
     Indication: BIPOLAR I DISORDER
     Route: 065
  3. FLUVOXAMINE MALEATE [Suspect]
     Indication: BIPOLAR I DISORDER
     Route: 048
  4. RISPERIDONE [Suspect]
     Route: 048

REACTIONS (1)
  - PARKINSONISM [None]
